FAERS Safety Report 15571325 (Version 9)
Quarter: 2020Q2

REPORT INFORMATION
  Report Type: Report from Study
  Country: US (occurrence: US)
  Receive Date: 20181031
  Receipt Date: 20200513
  Transmission Date: 20200713
  Serious: Yes (Death, Hospitalization, Other)
  Sender: FDA-Public Use
  Company Number: US-ACTELION-A-NJ2018-180882

PATIENT
  Age: 63 Year
  Sex: Female
  Weight: 113.38 kg

DRUGS (27)
  1. ATORVASTATIN [Concomitant]
     Active Substance: ATORVASTATIN
     Dosage: 40 MG, QD
     Route: 048
  2. ACULAR [Concomitant]
     Active Substance: KETOROLAC TROMETHAMINE
     Dosage: 1 DF, TID
  3. PAXIL [Concomitant]
     Active Substance: PAROXETINE HYDROCHLORIDE
     Dosage: 20 MG, TID
  4. OPSUMIT [Suspect]
     Active Substance: MACITENTAN
     Indication: PULMONARY ARTERIAL HYPERTENSION
     Dosage: 10 MG, QD
     Route: 048
     Dates: start: 201608, end: 20181108
  5. DELTASONE [Concomitant]
     Active Substance: PREDNISONE
     Dosage: 1 MG
     Route: 048
  6. GABAPENTIN. [Concomitant]
     Active Substance: GABAPENTIN
     Dosage: 100 MG, TID
  7. FUROSEMIDE. [Concomitant]
     Active Substance: FUROSEMIDE
     Dosage: 40 MG, QD
     Route: 048
  8. RHEUMATREX [Concomitant]
     Active Substance: METHOTREXATE SODIUM
     Dosage: 7.5 MG, Q1WEEK
     Route: 042
  9. ATROVENT [Concomitant]
     Active Substance: IPRATROPIUM BROMIDE
     Dosage: 0.5 MG, Q4HRS
     Route: 055
  10. EFFEXOR [Concomitant]
     Active Substance: VENLAFAXINE HYDROCHLORIDE
     Dosage: 37.5 MG, QD
  11. AMERGE [Concomitant]
     Active Substance: NARATRIPTAN HYDROCHLORIDE
  12. POTASSIUM CHLORIDE. [Concomitant]
     Active Substance: POTASSIUM CHLORIDE
     Dosage: 20 MEQ, BID
     Route: 048
  13. TOBRADEX [Concomitant]
     Active Substance: DEXAMETHASONE\TOBRAMYCIN
     Dosage: 1 DF, QID
     Route: 046
  14. TRENTAL [Concomitant]
     Active Substance: PENTOXIFYLLINE
     Dosage: 400 MG
  15. ROXICODONE [Concomitant]
     Active Substance: OXYCODONE HYDROCHLORIDE
     Dosage: 15 MG, Q6HRS
  16. FOLVITE [Concomitant]
     Active Substance: FOLIC ACID
     Dosage: 1 MG, QD
     Route: 048
  17. MULTIVITAMIN [Concomitant]
     Active Substance: VITAMINS
     Dosage: UNK, QD
  18. MIDAMOR [Concomitant]
     Active Substance: AMILORIDE HYDROCHLORIDE
     Dosage: 5 MG, QD
     Route: 048
  19. CREON [Concomitant]
     Active Substance: PANCRELIPASE AMYLASE\PANCRELIPASE LIPASE\PANCRELIPASE PROTEASE
     Dosage: 24000 DF, TID
  20. GLUCOTROL [Concomitant]
     Active Substance: GLIPIZIDE
     Dosage: 5 MG, BID
  21. KLONOPIN [Concomitant]
     Active Substance: CLONAZEPAM
     Dosage: 1 MG QAM, 2 MG QPM
  22. OPSUMIT [Suspect]
     Active Substance: MACITENTAN
     Dosage: 10 MG, QD
     Route: 048
     Dates: start: 20190715
  23. CILOXAN [Concomitant]
     Active Substance: CIPROFLOXACIN HYDROCHLORIDE
     Dosage: 1 DF, TID
  24. CORGARD [Concomitant]
     Active Substance: NADOLOL
     Dosage: 20 MG, QD
  25. ZOFRAN [Concomitant]
     Active Substance: ONDANSETRON HYDROCHLORIDE
     Dosage: 4 MG, BID
  26. RISPERDAL [Concomitant]
     Active Substance: RISPERIDONE
     Dosage: 2 MG, QD
     Route: 048
  27. COLCHICINE. [Concomitant]
     Active Substance: COLCHICINE
     Dosage: 0.6 MG, PRN
     Route: 048

REACTIONS (61)
  - Muscle spasms [Unknown]
  - Peripheral swelling [Unknown]
  - Palpitations [Unknown]
  - Unevaluable event [Unknown]
  - Hypertensive heart disease [Unknown]
  - Hepatitis B antibody positive [Unknown]
  - Microcytic anaemia [Unknown]
  - Cubital tunnel syndrome [Unknown]
  - Neuropathy peripheral [Unknown]
  - Hypoxia [Unknown]
  - Blindness [Unknown]
  - Fatigue [Unknown]
  - Condition aggravated [Unknown]
  - Hypomagnesaemia [Unknown]
  - Schizoaffective disorder [Unknown]
  - Post laminectomy syndrome [Unknown]
  - Swelling [Unknown]
  - Chest pain [Unknown]
  - Abdominal pain [Unknown]
  - Gastrooesophageal reflux disease [Unknown]
  - Hypokalaemia [Unknown]
  - Hyperuricaemia [Unknown]
  - Humerus fracture [Unknown]
  - Chronic respiratory failure [Unknown]
  - Blood parathyroid hormone increased [Unknown]
  - Death [Fatal]
  - Dyspnoea [Recovered/Resolved]
  - Dyskinesia [Unknown]
  - Syncope [Unknown]
  - Left ventricular hypertrophy [Unknown]
  - Dyslipidaemia [Unknown]
  - Diabetic neuropathy [Unknown]
  - Optic neuropathy [Unknown]
  - Foot deformity [Unknown]
  - Intervertebral disc space narrowing [Unknown]
  - Fibromyalgia [Unknown]
  - Pain in extremity [Unknown]
  - Gout [Unknown]
  - Myalgia [Unknown]
  - Aortic arteriosclerosis [Unknown]
  - Drug dependence [Unknown]
  - Blindness transient [Unknown]
  - Arteriosclerosis coronary artery [Unknown]
  - Chronic kidney disease [Unknown]
  - Acute kidney injury [Unknown]
  - Osteopenia [Unknown]
  - Intervertebral disc degeneration [Unknown]
  - Fall [Unknown]
  - Hypertriglyceridaemia [Unknown]
  - Cor pulmonale chronic [Unknown]
  - Peripheral vascular disorder [Unknown]
  - Type 2 diabetes mellitus [Unknown]
  - Large intestinal polypectomy [Unknown]
  - Pancreatitis chronic [Unknown]
  - Hypophosphataemia [Unknown]
  - Migraine [Unknown]
  - Lipase increased [Unknown]
  - Product dose omission [Unknown]
  - Nonalcoholic fatty liver disease [Unknown]
  - Temporal arteritis [Unknown]
  - Chronic obstructive pulmonary disease [Unknown]

NARRATIVE: CASE EVENT DATE: 201901
